FAERS Safety Report 8584874 (Version 4)
Quarter: 2012Q4

REPORT INFORMATION
  Report Type: 
  Country: US (occurrence: US)
  Receive Date: 20120530
  Receipt Date: 20121026
  Transmission Date: 20130627
  Serious: Yes (Hospitalization, Other)
  Sender: FDA-Public Use
  Company Number: US-BIOGENIDEC-2012BI018209

PATIENT
  Age: 42 Year
  Sex: Female

DRUGS (1)
  1. TYSABRI [Suspect]
     Indication: MULTIPLE SCLEROSIS
     Route: 042
     Dates: start: 20080910

REACTIONS (5)
  - Ovarian adhesion [Recovered/Resolved]
  - Benign uterine neoplasm [Recovered/Resolved]
  - Post procedural complication [Not Recovered/Not Resolved]
  - Sensory disturbance [Unknown]
  - General symptom [Unknown]
